FAERS Safety Report 7757402-5 (Version None)
Quarter: 2011Q3

REPORT INFORMATION
  Report Type: 
  Country: None (occurrence: None)
  Receive Date: 20110916
  Receipt Date: 20110908
  Transmission Date: 20111222
  Serious: Yes (Death, Hospitalization)
  Sender: FDA-Public Use
  Company Number: US-ACTELION-A-NJ2010-36437

PATIENT

DRUGS (2)
  1. TRACLEER [Suspect]
     Indication: PULMONARY ARTERIAL HYPERTENSION
     Dosage: 62.5 MG, BID
     Route: 048
     Dates: start: 20091222, end: 20110811
  2. CALCIUM CHANNEL BLOCKERS [Concomitant]

REACTIONS (3)
  - DYSPNOEA [None]
  - DEATH [None]
  - PULMONARY ARTERIAL HYPERTENSION [None]
